FAERS Safety Report 4649158-X (Version None)
Quarter: 2005Q2

REPORT INFORMATION
  Report Type: 
  Country: None (occurrence: None)
  Receive Date: 20050427
  Receipt Date: 20050413
  Transmission Date: 20051028
  Serious: Yes (Other)
  Sender: FDA-Public Use
  Company Number: US_0504115517

PATIENT
  Age: 50 Year
  Sex: Female
  Weight: 98 kg

DRUGS (3)
  1. HUMULIN 70/30 [Suspect]
     Indication: DIABETES MELLITUS
     Dosage: 4 U DAY
     Dates: start: 19950101
  2. LIPITOR [Concomitant]
  3. ZOLOFT [Concomitant]

REACTIONS (6)
  - BLINDNESS [None]
  - BLOOD CHOLESTEROL INCREASED [None]
  - DEPRESSION [None]
  - HYPERTENSION [None]
  - RENAL DISORDER [None]
  - RETINAL HAEMORRHAGE [None]
